FAERS Safety Report 19417851 (Version 3)
Quarter: 2021Q3

REPORT INFORMATION
  Report Type: Spontaneous
  Country: CO (occurrence: CO)
  Receive Date: 20210615
  Receipt Date: 20210727
  Transmission Date: 20211014
  Serious: Yes (Other)
  Sender: FDA-Public Use
  Company Number: CO-PFIZER INC-2021630494

PATIENT
  Sex: Female

DRUGS (1)
  1. GENOTROPIN [Suspect]
     Active Substance: SOMATROPIN
     Dosage: 1 MG
     Route: 058
     Dates: start: 2018, end: 2019

REACTIONS (3)
  - Thyroid disorder [Not Recovered/Not Resolved]
  - Drug ineffective [Unknown]
  - Blood glucose abnormal [Not Recovered/Not Resolved]
